FAERS Safety Report 8227694-7 (Version None)
Quarter: 2012Q1

REPORT INFORMATION
  Report Type: 
  Country: None (occurrence: None)
  Receive Date: 20120322
  Receipt Date: 20120315
  Transmission Date: 20120608
  Serious: Yes (Hospitalization, Other)
  Sender: FDA-Public Use
  Company Number: US-CELGENEUS-163-21880-11091293

PATIENT
  Sex: Male

DRUGS (15)
  1. REVLIMID [Suspect]
     Indication: MULTIPLE MYELOMA
     Dosage: 15 MILLIGRAM
     Route: 048
     Dates: start: 20110711, end: 20110807
  2. AMLODIPINE [Concomitant]
     Route: 065
  3. NATBICARB [Concomitant]
     Route: 065
  4. LEVOTHYROXINE SODIUM [Concomitant]
     Route: 065
  5. LANTUS [Concomitant]
     Route: 065
  6. LISINOPRIL [Concomitant]
     Route: 065
  7. PANTOPRAZOLE [Concomitant]
     Route: 065
  8. CARVEDILOL [Concomitant]
     Route: 065
  9. CLONIDINE [Concomitant]
     Route: 065
  10. LASIX [Concomitant]
     Route: 065
  11. SIMVASTATIN [Concomitant]
     Route: 065
  12. ALLOPURINOL [Concomitant]
     Route: 065
  13. PROBENECERP [Concomitant]
     Route: 065
  14. NORCO [Concomitant]
     Route: 065
  15. HISTOGOL [Concomitant]
     Route: 065

REACTIONS (6)
  - FULL BLOOD COUNT DECREASED [None]
  - HAEMOGLOBIN DECREASED [None]
  - SYNCOPE [None]
  - BLOOD ELECTROLYTES DECREASED [None]
  - HYPOTENSION [None]
  - FALL [None]
